FAERS Safety Report 4323558-X (Version None)
Quarter: 2004Q1

REPORT INFORMATION
  Report Type: 
  Country: None (occurrence: None)
  Receive Date: 20040325
  Receipt Date: 20040318
  Transmission Date: 20041129
  Serious: Yes (Death, Hospitalization)
  Sender: FDA-Public Use
  Company Number: WAES 0403DNK00019

PATIENT
  Age: 80 Year
  Sex: Male

DRUGS (4)
  1. ATORVASTATIN CALCIUM [Concomitant]
     Route: 048
  2. LEVOTHYROXINE SODIUM [Concomitant]
     Route: 048
  3. RAMIPRIL [Concomitant]
     Route: 048
  4. VIOXX [Suspect]
     Route: 048
     Dates: start: 20031023, end: 20040123

REACTIONS (1)
  - SEPSIS [None]
